FAERS Safety Report 11088124 (Version 6)
Quarter: 2017Q1

REPORT INFORMATION
  Report Type: Spontaneous
  Country: US (occurrence: US)
  Receive Date: 20150504
  Receipt Date: 20170112
  Transmission Date: 20170428
  Serious: Yes (Other)
  Sender: FDA-Public Use
  Company Number: US-PFIZER INC-2015147943

PATIENT
  Age: 78 Year
  Sex: Female
  Weight: 68 kg

DRUGS (21)
  1. MIRAPEX [Concomitant]
     Active Substance: PRAMIPEXOLE DIHYDROCHLORIDE
     Dosage: 0.125 MG, UNK
  2. CALTRATE [Concomitant]
     Active Substance: CALCIUM CARBONATE
     Dosage: UNK
  3. PRAZOSIN HCL [Concomitant]
     Active Substance: PRAZOSIN HYDROCHLORIDE
     Dosage: 1 MG, UNK
  4. ASPIRIN. [Concomitant]
     Active Substance: ASPIRIN
     Dosage: UNK
  5. HYDROXYCHLOROQUINE [Concomitant]
     Active Substance: HYDROXYCHLOROQUINE
     Dosage: UNK
  6. PRAZOSIN [Concomitant]
     Active Substance: PRAZOSIN
     Dosage: UNK
  7. ECOTRIN [Concomitant]
     Active Substance: ASPIRIN
     Dosage: 325 MG, UNK
  8. PROLIA [Concomitant]
     Active Substance: DENOSUMAB
     Dosage: PREFILL SYR 1ML-60MG, UNK
  9. XELJANZ [Suspect]
     Active Substance: TOFACITINIB CITRATE
     Dosage: 5 MG, 2X/DAY
     Route: 048
     Dates: start: 201502
  10. LISINOPRIL. [Concomitant]
     Active Substance: LISINOPRIL
     Dosage: 10 MG, UNK
  11. TYLENOL [Concomitant]
     Active Substance: ACETAMINOPHEN
     Dosage: 325 MG, UNK
  12. OXYBUTYNIN CL [Concomitant]
     Active Substance: OXYBUTYNIN CHLORIDE
     Dosage: 10 MG, UNK
  13. XELJANZ [Suspect]
     Active Substance: TOFACITINIB CITRATE
     Indication: RHEUMATOID ARTHRITIS
     Dosage: 5 MG, 2X/DAY
     Route: 048
     Dates: start: 201502
  14. HYDROXYCHLOROQUINE SULFATE. [Concomitant]
     Active Substance: HYDROXYCHLOROQUINE SULFATE
     Dosage: 200 MG, UNK
  15. XELJANZ [Suspect]
     Active Substance: TOFACITINIB CITRATE
     Dosage: 5 MG, 2X/DAY
     Route: 048
     Dates: start: 20150424, end: 201509
  16. XELJANZ [Suspect]
     Active Substance: TOFACITINIB CITRATE
     Dosage: 5 MG, 2X/DAY
     Route: 048
  17. PRILOSEC [Concomitant]
     Active Substance: OMEPRAZOLE MAGNESIUM
     Dosage: UNK
  18. CALTRATE WITH VITAMIN D [Concomitant]
     Active Substance: CALCIUM CARBONATE\CHOLECALCIFEROL
     Dosage: 600 MG, UNK
  19. LORAZEPAM. [Concomitant]
     Active Substance: LORAZEPAM
     Dosage: 240 0.5-0.5MG, UNK
  20. PRAVASTATIN. [Concomitant]
     Active Substance: PRAVASTATIN
     Dosage: 10 MG, UNK
  21. OMEPRAZOLE. [Concomitant]
     Active Substance: OMEPRAZOLE
     Dosage: 20 MG, UNK

REACTIONS (13)
  - Constipation [Not Recovered/Not Resolved]
  - Diarrhoea [Recovered/Resolved]
  - Nasopharyngitis [Unknown]
  - Malaise [Unknown]
  - Weight increased [Unknown]
  - Bone disorder [Not Recovered/Not Resolved]
  - Vomiting [Unknown]
  - Weight decreased [Not Recovered/Not Resolved]
  - Oropharyngeal pain [Unknown]
  - Chondropathy [Not Recovered/Not Resolved]
  - Oropharyngeal pain [Recovered/Resolved]
  - Gastroenteritis [Recovered/Resolved]
  - Cough [Unknown]

NARRATIVE: CASE EVENT DATE: 20150414
